FAERS Safety Report 12521075 (Version 1)
Quarter: 2016Q3

REPORT INFORMATION
  Report Type: Spontaneous
  Country: US (occurrence: US)
  Receive Date: 20160701
  Receipt Date: 20160701
  Transmission Date: 20161109
  Serious: No
  Sender: FDA-Public Use
  Company Number: US-009507513-1606USA007995

PATIENT
  Sex: Female
  Weight: 85.26 kg

DRUGS (1)
  1. NEXPLANON [Suspect]
     Active Substance: ETONOGESTREL
     Indication: CONTRACEPTION
     Dosage: 3 YEAR IMPLANT IN LEFT ARM
     Route: 059
     Dates: start: 20150605

REACTIONS (9)
  - Dysmenorrhoea [Unknown]
  - Vomiting [Unknown]
  - Malaise [Unknown]
  - Amenorrhoea [Recovered/Resolved]
  - Nausea [Unknown]
  - Diarrhoea [Unknown]
  - Polymenorrhoea [Unknown]
  - Menorrhagia [Unknown]
  - Menstruation irregular [Unknown]

NARRATIVE: CASE EVENT DATE: 2015
